FAERS Safety Report 13671905 (Version 2)
Quarter: 2017Q2

REPORT INFORMATION
  Report Type: Report from Study
  Country: None (occurrence: BR)
  Receive Date: 20170621
  Receipt Date: 20170622
  Transmission Date: 20170830
  Serious: Yes (Hospitalization, Other)
  Sender: FDA-Public Use
  Company Number: BR-ABBVIE-17K-020-2012078-00

PATIENT
  Sex: Male
  Weight: 74 kg

DRUGS (2)
  1. HUMIRA [Suspect]
     Active Substance: ADALIMUMAB
     Indication: PSORIASIS
     Route: 058
     Dates: start: 20120201, end: 201703
  2. PREDNISONE. [Concomitant]
     Active Substance: PREDNISONE
     Indication: PSORIASIS
     Route: 048
     Dates: start: 20170601

REACTIONS (14)
  - Skin oedema [Recovering/Resolving]
  - Skin exfoliation [Not Recovered/Not Resolved]
  - Dermatitis contact [Unknown]
  - Peripheral swelling [Not Recovered/Not Resolved]
  - Pyrexia [Recovered/Resolved]
  - Lymphadenitis bacterial [Recovered/Resolved]
  - Drug ineffective [Not Recovered/Not Resolved]
  - Dermatitis exfoliative [Unknown]
  - Abdominal pain [Recovered/Resolved]
  - Necrosis [Unknown]
  - Infection [Unknown]
  - Eczema [Unknown]
  - Drug eruption [Unknown]
  - Cholelithiasis [Recovered/Resolved]

NARRATIVE: CASE EVENT DATE: 2014
